FAERS Safety Report 14781464 (Version 1)
Quarter: 2018Q2

REPORT INFORMATION
  Report Type: Spontaneous
  Country: CA (occurrence: CA)
  Receive Date: 20180419
  Receipt Date: 20180419
  Transmission Date: 20180711
  Serious: Yes (Hospitalization, Disabling)
  Sender: FDA-Public Use
  Company Number: CA-TEVA-2018-CA-882766

PATIENT
  Age: 17 Year
  Sex: Male
  Weight: 88 kg

DRUGS (1)
  1. MINOCYCLINE [Suspect]
     Active Substance: MINOCYCLINE\MINOCYCLINE HYDROCHLORIDE
     Indication: ACNE
     Route: 048

REACTIONS (3)
  - Arthritis [Recovering/Resolving]
  - Arthralgia [Recovering/Resolving]
  - Neuropathy peripheral [Recovering/Resolving]
